FAERS Safety Report 22773609 (Version 16)
Quarter: 2024Q3

REPORT INFORMATION
  Report Type: Spontaneous
  Country: US (occurrence: US)
  Receive Date: 20230801
  Receipt Date: 20240708
  Transmission Date: 20241017
  Serious: Yes (Other)
  Sender: PFIZER
  Company Number: US-PFIZER INC-PV202300086200

PATIENT
  Age: 14 Year
  Sex: Male
  Weight: 50 kg

DRUGS (7)
  1. OXBRYTA [Suspect]
     Active Substance: VOXELOTOR
     Dosage: 500 MG/3 TABLETS
     Route: 048
     Dates: start: 20230306
  2. OXBRYTA [Suspect]
     Active Substance: VOXELOTOR
     Dosage: 300MG/5 TABLETS
     Route: 048
  3. OXBRYTA [Suspect]
     Active Substance: VOXELOTOR
     Dosage: 300MG/5 TABLETS BY MOUTH ONCE DAILY
     Route: 048
  4. HYDROXYUREA [Suspect]
     Active Substance: HYDROXYUREA
     Dosage: TAKES HYDROXYUREA IN THE MORNING
  5. ZOFRAN [Concomitant]
     Active Substance: ONDANSETRON HYDROCHLORIDE
     Dosage: UNK
  6. PREVACID [Concomitant]
     Active Substance: LANSOPRAZOLE
     Dosage: UNK
  7. PERIACTIN [Concomitant]
     Active Substance: CYPROHEPTADINE HYDROCHLORIDE
     Dosage: UNK

REACTIONS (12)
  - Sickle cell anaemia with crisis [Unknown]
  - Sickle cell anaemia with crisis [Unknown]
  - Nausea [Not Recovered/Not Resolved]
  - Abdominal pain [Unknown]
  - Pain [Unknown]
  - Malaise [Unknown]
  - Decreased appetite [Unknown]
  - Product dose omission in error [Unknown]
  - Intentional dose omission [Unknown]
  - Product use complaint [Unknown]
  - Product size issue [Unknown]
  - Intentional product misuse [Unknown]

NARRATIVE: CASE EVENT DATE: 20231001
